FAERS Safety Report 6541928-6 (Version None)
Quarter: 2010Q1

REPORT INFORMATION
  Report Type: 
  Country: None (occurrence: None)
  Receive Date: 20100119
  Receipt Date: 20100111
  Transmission Date: 20100710
  Serious: Yes (Death, Hospitalization, Other)
  Sender: FDA-Public Use
  Company Number: US-PFIZER INC-2009298828

PATIENT
  Sex: Female
  Weight: 70.295 kg

DRUGS (8)
  1. LYRICA [Suspect]
     Indication: NEURALGIA
     Dosage: UNK
     Route: 048
     Dates: start: 20070101, end: 20090901
  2. DILAUDID [Concomitant]
     Indication: BREAKTHROUGH PAIN
     Dosage: 4 TO 8 MG AS NEEDED,
  3. MORPHINE [Concomitant]
     Indication: BREAKTHROUGH PAIN
     Dosage: FREQUENCY: AS NEEDED,
  4. LORAZEPAM [Concomitant]
     Indication: ANXIETY DISORDER
     Dosage: 1-2 MG AS NEEDED,
     Route: 048
  5. LORAZEPAM [Concomitant]
     Indication: PAIN
  6. EFFEXOR [Concomitant]
     Dosage: 150 MG, 1X/DAY
  7. DECADRON [Concomitant]
     Dosage: 4 MG, 2X/DAY
  8. WARFARIN [Concomitant]
     Dosage: 5 MG, 1X/DAY

REACTIONS (7)
  - CHONDROSARCOMA [None]
  - DEEP VEIN THROMBOSIS [None]
  - METASTASES TO LUNG [None]
  - NEOPLASM [None]
  - OEDEMA PERIPHERAL [None]
  - PAIN [None]
  - SEDATION [None]
